FAERS Safety Report 5490151-5 (Version None)
Quarter: 2007Q4

REPORT INFORMATION
  Report Type: 
  Country: None (occurrence: None)
  Receive Date: 20071018
  Receipt Date: 20071016
  Transmission Date: 20080405
  Serious: No
  Sender: FDA-Public Use
  Company Number: US-BOEHRINGER INGELHEIM PHARMACEUTICALS, INC.-2007-BP-19742BP

PATIENT
  Age: 53 Year
  Sex: Female

DRUGS (9)
  1. COMBIVENT [Suspect]
     Indication: CHRONIC OBSTRUCTIVE PULMONARY DISEASE
     Route: 055
     Dates: start: 19970101
  2. ADVAIR DISKUS 100/50 [Concomitant]
     Indication: ASTHMA
  3. GUAIFENESIN [Concomitant]
  4. DEPAKOTE [Concomitant]
  5. DEPAKOTE [Concomitant]
  6. NASONEX [Concomitant]
  7. HYDROXYZINE [Concomitant]
  8. ASPIRIN [Concomitant]
  9. ZANTAC [Concomitant]

REACTIONS (2)
  - COUGH [None]
  - DRUG INEFFECTIVE [None]
